FAERS Safety Report 10388963 (Version 1)
Quarter: 2014Q1

REPORT INFORMATION
  Report Type: Spontaneous
  Country: US (occurrence: None)
  Receive Date: 20140306
  Receipt Date: 20140306
  Transmission Date: 20141002
  Serious: Yes (Hospitalization)
  Sender: FDA-Public Use
  Company Number: 163-21880-13111819

PATIENT
  Age: 30 Year
  Sex: Male
  Weight: 94.35 kg

DRUGS (8)
  1. REVLIMID (LENALIDOMIDE) (10 MILLIGRAM, CAPSULES) [Suspect]
     Indication: HODGKIN^S DISEASE
     Route: 048
     Dates: start: 20130529
  2. ENOXAPARIN [Concomitant]
  3. OMEPRAZOLE [Concomitant]
  4. PREDNISONE [Concomitant]
  5. LOPERAMIDE [Concomitant]
  6. HYDROXYZINE [Concomitant]
  7. ACYCLOVIR SODIUM [Concomitant]
  8. HYDROCODONE [Concomitant]

REACTIONS (1)
  - Pulmonary embolism [None]
